FAERS Safety Report 8394813 (Version 4)
Quarter: 2013Q1

REPORT INFORMATION
  Report Type: Report from Study
  Country: CA (occurrence: US)
  Receive Date: 20120207
  Receipt Date: 20130222
  Transmission Date: 20140127
  Serious: Yes (Death, Life-Threatening, Hospitalization)
  Sender: FDA-Public Use
  Company Number: GB-GILEAD-2012-0049923

PATIENT
  Age: 40 Year
  Sex: Male

DRUGS (10)
  1. EFAVIRENZ/EMTRICITABINE/TENOFOVIR DISOPROXIL FUMARATE [Suspect]
     Indication: HIV INFECTION
     Dosage: UNK
     Route: 048
     Dates: start: 20110331, end: 20111217
  2. MULTIVITAMINS, COMBINATIONS [Concomitant]
     Indication: PRODUCT USED FOR UNKNOWN INDICATION
     Dosage: UNK
     Route: 065
     Dates: start: 20111220, end: 20120106
  3. NICOTINE [Concomitant]
     Indication: PRODUCT USED FOR UNKNOWN INDICATION
     Dosage: UNK
     Route: 065
     Dates: start: 20111219, end: 20120106
  4. OCULAR LUBRICANT                   /00445101/ [Concomitant]
     Indication: PRODUCT USED FOR UNKNOWN INDICATION
     Dosage: UNK
     Route: 065
     Dates: start: 20111220, end: 20120109
  5. THIAMINE [Concomitant]
     Indication: PRODUCT USED FOR UNKNOWN INDICATION
     Dosage: UNK
     Route: 065
     Dates: start: 20111220, end: 20120106
  6. PANTOPRAZOLE [Concomitant]
     Indication: PRODUCT USED FOR UNKNOWN INDICATION
     Dosage: UNK
     Route: 065
     Dates: start: 20111219, end: 20120104
  7. PARACETAMOL [Concomitant]
     Indication: PRODUCT USED FOR UNKNOWN INDICATION
     Dosage: UNK
     Route: 065
     Dates: start: 20111218, end: 20120108
  8. CEPHAZOLIN SODIUM [Concomitant]
     Indication: PRODUCT USED FOR UNKNOWN INDICATION
     Dosage: UNK
     Route: 065
     Dates: start: 20111228, end: 20120104
  9. DIPHENHYDRAMINE HCL [Concomitant]
     Dosage: UNK
     Dates: start: 20111220, end: 20111223
  10. HALOPERIDOL [Concomitant]
     Dosage: UNK
     Dates: start: 20111220

REACTIONS (5)
  - Renal failure [Fatal]
  - Septic shock [Fatal]
  - Systemic candida [Unknown]
  - Vascular pseudoaneurysm [Unknown]
  - Respiratory failure [Unknown]
